FAERS Safety Report 15536155 (Version 3)
Quarter: 2019Q2

REPORT INFORMATION
  Report Type: Report from Study
  Country: IL (occurrence: IL)
  Receive Date: 20181022
  Receipt Date: 20190423
  Transmission Date: 20190711
  Serious: Yes (Hospitalization)
  Sender: FDA-Public Use
  Company Number: IL-ACTELION-A-CH2018-179791

PATIENT
  Age: 77 Year
  Sex: Female

DRUGS (10)
  1. UPTRAVI [Suspect]
     Active Substance: SELEXIPAG
     Dosage: 400 MCG, BID
     Route: 048
     Dates: start: 20180729
  2. PLAVIX [Concomitant]
     Active Substance: CLOPIDOGREL BISULFATE
  3. UPTRAVI [Suspect]
     Active Substance: SELEXIPAG
     Indication: PULMONARY ARTERIAL HYPERTENSION
     Dosage: 600 MCG, BID
     Route: 048
  4. MICROPIRIN [Concomitant]
     Active Substance: ASPIRIN
  5. NORVASC [Concomitant]
     Active Substance: AMLODIPINE BESYLATE
  6. FUSID [Concomitant]
  7. UPTRAVI [Suspect]
     Active Substance: SELEXIPAG
     Dosage: UNK
     Route: 048
  8. VABEN [Concomitant]
     Active Substance: OXAZEPAM
  9. LOSEC [Concomitant]
     Active Substance: OMEPRAZOLE
  10. OPSUMIT [Suspect]
     Active Substance: MACITENTAN
     Indication: PULMONARY ARTERIAL HYPERTENSION
     Dosage: 10 MG, QD
     Route: 048
     Dates: start: 20171001

REACTIONS (6)
  - Transfusion [Unknown]
  - Oxygen saturation decreased [Not Recovered/Not Resolved]
  - Product dose omission [Unknown]
  - Myalgia [Recovered/Resolved]
  - Haemoglobin decreased [Not Recovered/Not Resolved]
  - Dependence on oxygen therapy [Unknown]

NARRATIVE: CASE EVENT DATE: 20180916
